FAERS Safety Report 5778510-4 (Version None)
Quarter: 2008Q2

REPORT INFORMATION
  Report Type: 
  Country: None (occurrence: None)
  Receive Date: 20080619
  Receipt Date: 20080617
  Transmission Date: 20081010
  Serious: Yes (Other)
  Sender: FDA-Public Use
  Company Number: FR-AVENTIS-200812928EU

PATIENT
  Age: 64 Year
  Sex: Male

DRUGS (1)
  1. INDAPAMIDE [Suspect]
     Indication: HYPERTENSION
     Route: 048

REACTIONS (4)
  - BRUGADA SYNDROME [None]
  - HYPOKALAEMIA [None]
  - HYPONATRAEMIA [None]
  - LONG QT SYNDROME [None]
